FAERS Safety Report 5779351-4 (Version None)
Quarter: 2008Q2

REPORT INFORMATION
  Report Type: 
  Country: None (occurrence: None)
  Receive Date: 20080619
  Receipt Date: 20051225
  Transmission Date: 20081010
  Serious: Yes (Hospitalization)
  Sender: FDA-Public Use
  Company Number: AR-BOEHRINGER INGELHEIM GMBH, GERMANY-2005-BP-00387RA

PATIENT
  Sex: Male
  Weight: 58 kg

DRUGS (1)
  1. TIPRANAVIR / RITONAVIR CAPSULES, SOFTGELATIN [Suspect]
     Indication: HIV INFECTION
     Dosage: 1000/400 MG
     Route: 048
     Dates: start: 20040720, end: 20041113

REACTIONS (2)
  - EYE HAEMORRHAGE [None]
  - HEPATITIS VIRAL [None]
